FAERS Safety Report 9583625 (Version 1)
Quarter: 2013Q4

REPORT INFORMATION
  Report Type: Spontaneous
  Country: US (occurrence: US)
  Receive Date: 20131002
  Receipt Date: 20131002
  Transmission Date: 20140711
  Serious: No
  Sender: FDA-Public Use
  Company Number: US-AMGEN-USASP2013048030

PATIENT
  Age: 40 Year
  Sex: Female

DRUGS (8)
  1. ENBREL [Suspect]
     Indication: PRODUCT USED FOR UNKNOWN INDICATION
     Dosage: 25 MG, 2 TIMES/WK
     Route: 058
  2. TRAZODONE [Concomitant]
     Dosage: 100 MG, UNK
  3. IMITREX                            /01044801/ [Concomitant]
     Dosage: 25 MG, UNK
  4. SPRINTEC [Concomitant]
     Dosage: UNK, 28 DAYS
  5. RANITIDIN [Concomitant]
     Dosage: 300 MG, UNK
  6. TOPIRAMATE [Concomitant]
     Dosage: 25 MG, UNK
  7. TYLENOL                            /00020001/ [Concomitant]
     Dosage: 650 MG, TID
  8. PROBIOTIC                          /06395501/ [Concomitant]
     Dosage: UNK

REACTIONS (3)
  - Injection site swelling [Unknown]
  - Injection site erythema [Unknown]
  - Injection site rash [Unknown]
